FAERS Safety Report 5720818-2 (Version None)
Quarter: 2008Q2

REPORT INFORMATION
  Report Type: 
  Country: None (occurrence: None)
  Receive Date: 20080429
  Receipt Date: 20080423
  Transmission Date: 20081010
  Serious: Yes (Other)
  Sender: FDA-Public Use
  Company Number: PHRM2008FR00964

PATIENT
  Age: 34 Year
  Sex: Female

DRUGS (7)
  1. SYNTOCINON [Suspect]
     Dosage: 20 IU, ONCE/SINGLE
     Dates: start: 20080226
  2. SYNTOCINON [Suspect]
     Dosage: 10 IU, ONCE/SINGLE
     Route: 042
     Dates: start: 20080226, end: 20080226
  3. SYNTOCINON [Suspect]
     Dosage: 10 IU, ONCE/SINGLE
     Dates: start: 20080226
  4. SYNTOCINON [Suspect]
     Dosage: 5 IU, ONCE/SINGLE
     Dates: start: 20080226
  5. SYNTOCINON [Suspect]
     Dosage: 5 IU, ONCE/SINGLE
     Route: 042
     Dates: start: 20080226, end: 20080226
  6. MAG 2 [Concomitant]
     Dosage: 1 DF, ONCE/SINGLE
     Dates: start: 20080226, end: 20080226
  7. SPASFON [Concomitant]
     Dosage: 2 DF, ONCE/SINGLE
     Route: 042
     Dates: start: 20080226, end: 20080226

REACTIONS (4)
  - DRUG INEFFECTIVE [None]
  - MASSAGE [None]
  - POSTPARTUM HAEMORRHAGE [None]
  - UTERINE ATONY [None]
